FAERS Safety Report 18181337 (Version 2)
Quarter: 2020Q3

REPORT INFORMATION
  Report Type: Spontaneous
  Country: PR (occurrence: PR)
  Receive Date: 20200821
  Receipt Date: 20200911
  Transmission Date: 20201103
  Serious: No
  Sender: FDA-Public Use
  Company Number: PR-BAYER-2020-168209

PATIENT
  Age: 51 Year
  Sex: Female

DRUGS (1)
  1. STIVARGA [Suspect]
     Active Substance: REGORAFENIB
     Indication: RECTAL CANCER
     Dosage: DAILY DOSE 40 MG ON 21 DAYS AND 7 DAYS REST
     Dates: start: 20200323

REACTIONS (10)
  - Off label use [None]
  - Glossitis [None]
  - Bone pain [None]
  - Erythema [None]
  - Abdominal discomfort [None]
  - Pain in extremity [None]
  - Discharge [None]
  - Skin exfoliation [None]
  - Diarrhoea [None]
  - Asthenia [None]

NARRATIVE: CASE EVENT DATE: 20200323
